FAERS Safety Report 25597561 (Version 1)
Quarter: 2025Q3

REPORT INFORMATION
  Report Type: Spontaneous
  Country: US (occurrence: None)
  Receive Date: 20250723
  Receipt Date: 20250723
  Transmission Date: 20251020
  Serious: Yes (Other)
  Sender: FDA-CTU
  Company Number: None

PATIENT
  Age: 53 Year
  Sex: Female
  Weight: 60.75 kg

DRUGS (5)
  1. QELBREE [Suspect]
     Active Substance: VILOXAZINE HYDROCHLORIDE
     Indication: Attention deficit hyperactivity disorder
     Dosage: 1 CAPSULE DAILY ORAL ?
     Route: 048
     Dates: start: 20250601, end: 20250722
  2. OMEPRAZOLE [Concomitant]
     Active Substance: OMEPRAZOLE
  3. SINGULAIR [Concomitant]
     Active Substance: MONTELUKAST SODIUM
  4. ZEPBOUND [Concomitant]
     Active Substance: TIRZEPATIDE
  5. XYZAL [Concomitant]
     Active Substance: LEVOCETIRIZINE DIHYDROCHLORIDE

REACTIONS (3)
  - Therapy interrupted [None]
  - Migraine [None]
  - Vomiting [None]

NARRATIVE: CASE EVENT DATE: 20250723
